FAERS Safety Report 12807897 (Version 2)
Quarter: 2016Q4

REPORT INFORMATION
  Report Type: Spontaneous
  Country: NL (occurrence: NL)
  Receive Date: 20161004
  Receipt Date: 20161013
  Transmission Date: 20170207
  Serious: Yes (Death, Hospitalization, Other)
  Sender: FDA-Public Use
  Company Number: NL-JAZZ-2016-NL-019106

PATIENT
  Age: 58 Year
  Sex: Male

DRUGS (17)
  1. PRIALT [Suspect]
     Active Substance: ZICONOTIDE ACETATE
     Dosage: UNK ?G, QH (INCREASED DOSE)
     Route: 037
     Dates: start: 20160511
  2. TIOTROPIUM [Concomitant]
     Active Substance: TIOTROPIUM
  3. ONDANSETRON [Concomitant]
     Active Substance: ONDANSETRON
     Dosage: 16 MG, UNK
     Route: 048
  4. MAGNESIUM HYDROXIDE. [Concomitant]
     Active Substance: MAGNESIUM HYDROXIDE
     Dosage: UNK, PRN
     Route: 048
  5. PROMETHAZINE [Concomitant]
     Active Substance: PROMETHAZINE\PROMETHAZINE HYDROCHLORIDE
     Dosage: 100 MG, UNK
     Route: 048
  6. SALMETEROL [Concomitant]
     Active Substance: SALMETEROL
  7. NOVORAPID [Concomitant]
     Active Substance: INSULIN ASPART
     Route: 058
  8. PRIALT [Suspect]
     Active Substance: ZICONOTIDE ACETATE
     Dosage: 6 ?G, QH
     Route: 037
     Dates: start: 20160215
  9. SUFENTANIL [Concomitant]
     Active Substance: SUFENTANIL
     Indication: PRODUCT USED FOR UNKNOWN INDICATION
     Dosage: 9 ?G, UNK
     Route: 037
     Dates: start: 20160215
  10. SIMVASTATIN. [Concomitant]
     Active Substance: SIMVASTATIN
     Dosage: 40 MG, UNK
     Route: 048
  11. PRIALT [Suspect]
     Active Substance: ZICONOTIDE ACETATE
     Indication: PRODUCT USED FOR UNKNOWN INDICATION
     Dosage: UNK ?G, QH
     Route: 037
     Dates: start: 20160125, end: 20160215
  12. RANITIDINE. [Concomitant]
     Active Substance: RANITIDINE
     Dosage: 300 MG, UNK
     Route: 048
  13. PANTOPRAZOLE [Concomitant]
     Active Substance: PANTOPRAZOLE SODIUM
     Dosage: 40 MG, UNK
     Route: 048
  14. LORAZEPAM. [Concomitant]
     Active Substance: LORAZEPAM
     Route: 048
  15. PANCREASE                          /00014701/ [Concomitant]
     Dosage: 3 DF (DOSAGE FORMS), UNK
     Route: 048
  16. CLONAZEPAM. [Concomitant]
     Active Substance: CLONAZEPAM
     Dosage: UNK, PRN
     Route: 048
  17. FENTANYL. [Concomitant]
     Active Substance: FENTANYL
     Dosage: 1200 ?G, UNK
     Route: 048

REACTIONS (7)
  - Metastatic neoplasm [Fatal]
  - Palpitations [Unknown]
  - Chest pain [Unknown]
  - Hyperhidrosis [Unknown]
  - Hypopnoea [Unknown]
  - Tachycardia [Unknown]
  - Pneumonia [Fatal]

NARRATIVE: CASE EVENT DATE: 20160513
